FAERS Safety Report 8162891-0 (Version None)
Quarter: 2012Q1

REPORT INFORMATION
  Report Type: 
  Country: None (occurrence: None)
  Receive Date: 20120224
  Receipt Date: 20120215
  Transmission Date: 20120608
  Serious: Yes (Hospitalization)
  Sender: FDA-Public Use
  Company Number: DE-JNJFOC-20120111930

PATIENT
  Age: 72 Year
  Sex: Female

DRUGS (7)
  1. METHOTREXATE [Concomitant]
  2. ARCOXIA [Concomitant]
  3. PREDNISOLONE [Concomitant]
  4. ALENDRONIC ACID [Concomitant]
  5. CALCIUM [Concomitant]
  6. FOLIC ACID [Concomitant]
  7. SIMPONI [Suspect]
     Indication: RHEUMATOID ARTHRITIS
     Route: 058
     Dates: start: 20100505

REACTIONS (4)
  - IRON DEFICIENCY ANAEMIA [None]
  - PERICARDIAL EFFUSION [None]
  - GASTROINTESTINAL ANGIODYSPLASIA [None]
  - PLEURAL EFFUSION [None]
